FAERS Safety Report 8176566 (Version 2)
Quarter: 2013Q2

REPORT INFORMATION
  Report Type: Report from Study
  Country: PL (occurrence: PL)
  Receive Date: 20111012
  Receipt Date: 20130426
  Transmission Date: 20140414
  Serious: Yes (Hospitalization, Other)
  Sender: FDA-Public Use
  Company Number: PL-UCBSA-014530

PATIENT
  Age: 26 Year
  Sex: Female
  Weight: 49.1 kg

DRUGS (9)
  1. CERTOLIZUMAB PEGOL [Suspect]
     Indication: CROHN^S DISEASE
     Dosage: STUDY C87085
     Route: 058
  2. CERTOLIZUMAB PEGOL [Suspect]
     Indication: CROHN^S DISEASE
     Dosage: AT WEEK 0, 2 AND 4
     Route: 058
     Dates: start: 20080714
  3. CERTOLIZUMAB PEGOL [Suspect]
     Indication: CROHN^S DISEASE
     Route: 058
     Dates: end: 20110308
  4. CORHYDRON [Concomitant]
     Indication: CROHN^S DISEASE
     Route: 042
     Dates: start: 20110214, end: 20110225
  5. CORHYDRON [Concomitant]
     Indication: CROHN^S DISEASE
     Route: 054
     Dates: start: 20110214, end: 20110225
  6. SALOFALK [Concomitant]
     Indication: CROHN^S DISEASE
     Route: 054
     Dates: start: 20110214, end: 20110225
  7. CIPROFLOXACIN [Concomitant]
     Indication: CROHN^S DISEASE
     Route: 048
     Dates: start: 20110205, end: 20110225
  8. METRONIDAZOL [Concomitant]
     Indication: CROHN^S DISEASE
     Route: 048
     Dates: start: 20110205, end: 20110225
  9. PREDNISOLON [Concomitant]
     Indication: CROHN^S DISEASE
     Route: 048
     Dates: start: 20110214, end: 20110225

REACTIONS (3)
  - Anorectal disorder [Recovered/Resolved]
  - Crohn^s disease [Recovering/Resolving]
  - Vaginal inflammation [Recovered/Resolved]
